FAERS Safety Report 7969538-4 (Version None)
Quarter: 2011Q4

REPORT INFORMATION
  Report Type: 
  Country: None (occurrence: None)
  Receive Date: 20111212
  Receipt Date: 20111207
  Transmission Date: 20120403
  Serious: No
  Sender: FDA-Public Use
  Company Number: US-PFIZER INC-2011299241

PATIENT
  Sex: Female
  Weight: 77.098 kg

DRUGS (8)
  1. FLEXERIL [Concomitant]
     Indication: CYSTITIS INTERSTITIAL
     Dosage: UNK
  2. ESTRING [Suspect]
     Indication: PREMATURE MENOPAUSE
  3. ELMIRON [Concomitant]
     Indication: CYSTITIS INTERSTITIAL
     Dosage: UNK
  4. WELLBUTRIN [Concomitant]
     Indication: CYSTITIS INTERSTITIAL
     Dosage: UNK
  5. ESTRING [Suspect]
     Indication: VULVOVAGINAL DRYNESS
     Dosage: 2 MG, UNK
     Route: 067
     Dates: start: 20111130, end: 20111201
  6. ATARAX [Concomitant]
     Indication: CYSTITIS INTERSTITIAL
     Dosage: UNK
  7. AMBIEN [Concomitant]
     Indication: CYSTITIS INTERSTITIAL
     Dosage: UNK
  8. TOPAMAX [Concomitant]
     Indication: CYSTITIS INTERSTITIAL
     Dosage: UNK

REACTIONS (3)
  - DRUG INEFFECTIVE [None]
  - PAIN [None]
  - VULVOVAGINAL DISCOMFORT [None]
